FAERS Safety Report 6186567-4 (Version None)
Quarter: 2009Q2

REPORT INFORMATION
  Report Type: 
  Country: None (occurrence: None)
  Receive Date: 20090512
  Receipt Date: 20090506
  Transmission Date: 20091009
  Serious: Yes (Other)
  Sender: FDA-Public Use
  Company Number: CH-BRISTOL-MYERS SQUIBB COMPANY-14616635

PATIENT
  Age: 66 Year
  Sex: Male

DRUGS (11)
  1. PERFALGAN IV INFUSION [Suspect]
     Dosage: FORMULATION-INFUSION AMPOULES,BAGS.STRENGTH-1G.
     Route: 041
     Dates: start: 20090209, end: 20090213
  2. DAFALGAN TABS 1 GM [Suspect]
     Dosage: FORMULATION-COATED TABS,FILM.STRENGTH-1G.
     Route: 048
     Dates: start: 20090213, end: 20090219
  3. CEFEPIME [Suspect]
     Route: 041
     Dates: start: 20090212, end: 20090220
  4. DALMADORM [Suspect]
     Dosage: FORMULATION-COATED TABS,FILM.STRENGTH-15MG.
     Route: 048
     Dates: start: 20090211, end: 20090216
  5. NEXIUM [Suspect]
     Dosage: 1 DF = 20(UNIT NOT SPECIFIED),STRENGTH-22.3MG,FORMULATION-TABS.
  6. ASPIRIN [Concomitant]
     Dosage: DURATION OF USE-LONG TERM.
     Route: 048
  7. CYMBALTA [Concomitant]
     Dosage: FORM-CAPS,STRENGTH-33.7MG,DURATION OF USE-LONG TERM.
     Route: 048
  8. PRAVASTATIN [Concomitant]
     Dosage: FORM-TABS,STRENGTH-40MG,DURATION OF USE-LONG TERM.
     Route: 048
  9. RISPERDAL [Concomitant]
     Dosage: DURATION OF USE-LONG TERM.
     Route: 048
  10. TEGRETOL [Concomitant]
     Dosage: FORM-TABS,STRENGTH-200MG,DURATION OF USE-LONG TERM.
     Route: 048
  11. XANAX [Concomitant]
     Dosage: DURATION OF USE-LONG TERM.

REACTIONS (1)
  - LIVER INJURY [None]
